FAERS Safety Report 8124465-7 (Version None)
Quarter: 2012Q1

REPORT INFORMATION
  Report Type: 
  Country: None (occurrence: None)
  Receive Date: 20120209
  Receipt Date: 20120206
  Transmission Date: 20120608
  Serious: Yes (Other)
  Sender: FDA-Public Use
  Company Number: US-BAYER-2012-012573

PATIENT
  Age: 87 Year
  Sex: Female

DRUGS (7)
  1. PLAVIX [Interacting]
  2. ISOSORBIDE DINITRATE [Concomitant]
  3. ATORVASTATIN [Concomitant]
  4. FERROUS SULFATE TAB [Concomitant]
  5. NEXIUM [Concomitant]
  6. FUROSEMIDE [Concomitant]
  7. ACETYLSALICYLIC ACID SRT [Suspect]

REACTIONS (3)
  - HEADACHE [None]
  - EPISTAXIS [None]
  - COAGULOPATHY [None]
